FAERS Safety Report 22210746 (Version 1)
Quarter: 2023Q2

REPORT INFORMATION
  Report Type: Spontaneous
  Country: US (occurrence: US)
  Receive Date: 20230414
  Receipt Date: 20230414
  Transmission Date: 20230722
  Serious: No
  Sender: FDA-Public Use
  Company Number: US-BoehringerIngelheim-2023-BI-231441

PATIENT
  Sex: Female

DRUGS (1)
  1. GLYXAMBI [Suspect]
     Active Substance: EMPAGLIFLOZIN\LINAGLIPTIN
     Indication: Product used for unknown indication
     Dates: start: 20220106, end: 20221129

REACTIONS (4)
  - Fungal infection [Unknown]
  - Glycosylated haemoglobin increased [Unknown]
  - Back disorder [Unknown]
  - Pancreatic disorder [Unknown]
